FAERS Safety Report 21563781 (Version 1)
Quarter: 2022Q4

REPORT INFORMATION
  Report Type: Spontaneous
  Country: US (occurrence: US)
  Receive Date: 20221108
  Receipt Date: 20221108
  Transmission Date: 20230113
  Serious: No
  Sender: FDA-Public Use
  Company Number: US-AMGEN-USASP2022190029

PATIENT
  Sex: Female

DRUGS (1)
  1. NEULASTA [Suspect]
     Active Substance: PEGFILGRASTIM
     Indication: Product used for unknown indication
     Dosage: UNK, Q3WK
     Route: 065
     Dates: start: 20221013

REACTIONS (3)
  - Back pain [Unknown]
  - Heart rate increased [Unknown]
  - Rash pruritic [Unknown]

NARRATIVE: CASE EVENT DATE: 20221013
